FAERS Safety Report 12755248 (Version 1)
Quarter: 2016Q3

REPORT INFORMATION
  Report Type: Report from Study
  Country: US (occurrence: US)
  Receive Date: 20160916
  Receipt Date: 20160916
  Transmission Date: 20161109
  Serious: Yes (Other)
  Sender: FDA-Public Use
  Company Number: US-AMGEN-USASL2016123071

PATIENT
  Age: 73 Year
  Sex: Female

DRUGS (1)
  1. ENBREL [Suspect]
     Active Substance: ETANERCEPT
     Indication: RHEUMATOID ARTHRITIS
     Dosage: UNK
     Route: 065

REACTIONS (8)
  - Blood triglycerides increased [Unknown]
  - Discomfort [Unknown]
  - Cerebrovascular accident [Unknown]
  - Blood cholesterol increased [Unknown]
  - Limb discomfort [Unknown]
  - Visual impairment [Unknown]
  - Hypoaesthesia oral [Unknown]
  - Memory impairment [Unknown]

NARRATIVE: CASE EVENT DATE: 20160511
